FAERS Safety Report 25005715 (Version 2)
Quarter: 2025Q1

REPORT INFORMATION
  Report Type: Report from Study
  Country: FI (occurrence: FI)
  Receive Date: 20250224
  Receipt Date: 20250303
  Transmission Date: 20250408
  Serious: Yes (Life-Threatening, Hospitalization, Other)
  Sender: MYLAN
  Company Number: FI-MYLANLABS-2025M1015271

PATIENT
  Age: 29 Year
  Sex: Male

DRUGS (4)
  1. CLOZAPINE [Suspect]
     Active Substance: CLOZAPINE
     Indication: Schizophrenia
     Dosage: UNK UNK, BID (TWICE PER DAY, 50MG MORNING AND 150MG EVENING, DAILY DOSE 200MG)
     Dates: start: 20250128, end: 20250216
  2. ARIPIPRAZOLE [Concomitant]
     Active Substance: ARIPIPRAZOLE
     Dosage: 30 MILLIGRAM, AM (ONCE A DAY IN THE MORNING)
     Dates: end: 20250131
  3. ARIPIPRAZOLE [Concomitant]
     Active Substance: ARIPIPRAZOLE
     Dosage: 15 MILLIGRAM, AM (ONCE A DAY IN THE MORNING)
     Dates: start: 20250201, end: 20250213
  4. ARIPIPRAZOLE [Concomitant]
     Active Substance: ARIPIPRAZOLE
     Dosage: 10 MILLIGRAM, AM (ONCE A DAY IN THE MORNING)
     Dates: start: 20250214

REACTIONS (16)
  - Inflammation [Recovered/Resolved]
  - Myocarditis [Recovered/Resolved]
  - C-reactive protein increased [Recovered/Resolved]
  - Troponin I increased [Recovered/Resolved]
  - Electrocardiogram ST segment depression [Unknown]
  - Influenza like illness [Recovered/Resolved]
  - Blood potassium decreased [Unknown]
  - Brain natriuretic peptide increased [Unknown]
  - Fibrin D dimer increased [Unknown]
  - Diarrhoea [Recovered/Resolved]
  - Pyrexia [Recovered/Resolved]
  - Pleural effusion [Unknown]
  - Chest pain [Unknown]
  - White blood cell count increased [Unknown]
  - Eosinophil count increased [Unknown]
  - Off label use [Recovered/Resolved]

NARRATIVE: CASE EVENT DATE: 20250128
